FAERS Safety Report 7802918-6 (Version None)
Quarter: 2011Q4

REPORT INFORMATION
  Report Type: 
  Country: None (occurrence: None)
  Receive Date: 20111007
  Receipt Date: 20110927
  Transmission Date: 20120403
  Serious: Yes (Hospitalization, Disabling)
  Sender: FDA-Public Use
  Company Number: US-ELI_LILLY_AND_COMPANY-US201108002547

PATIENT
  Age: 70 Year
  Sex: Female
  Weight: 121.4 kg

DRUGS (10)
  1. ENALAPRIL MALEATE [Concomitant]
     Dosage: 10 MG, QD
     Route: 048
  2. HUMULIN N [Suspect]
     Indication: TYPE 2 DIABETES MELLITUS
     Dosage: 40 U, EACH MORNING
     Dates: start: 19910101
  3. ROBAXIN [Concomitant]
     Dosage: 750 MG, BID
  4. HUMULIN R [Suspect]
     Dosage: 15 U, EACH EVENING
     Dates: start: 19910101
  5. CALTHOR [Concomitant]
     Dosage: UNK, BID
  6. LIPITOR [Concomitant]
     Dosage: 20 MG, QD
     Route: 048
  7. TYLENOL W/ CODEINE NO. 4 [Concomitant]
     Dosage: UNK, BID
  8. HUMULIN N [Suspect]
     Dosage: 40 U, EACH EVENING
     Dates: start: 19910101
  9. HUMULIN R [Suspect]
     Indication: TYPE 2 DIABETES MELLITUS
     Dosage: 15 U, EACH MORNING
     Dates: start: 19910101
  10. MOTRIN [Concomitant]
     Dosage: 400 MG, BID
     Route: 048

REACTIONS (5)
  - MOBILITY DECREASED [None]
  - PRURITUS [None]
  - BURNS THIRD DEGREE [None]
  - SCAR [None]
  - ARTHRITIS [None]
